FAERS Safety Report 8849080 (Version 1)
Quarter: 2012Q4

REPORT INFORMATION
  Report Type: 
  Country: DE (occurrence: DE)
  Receive Date: 20121019
  Receipt Date: 20121019
  Transmission Date: 20130627
  Serious: Yes (Other)
  Sender: FDA-Public Use
  Company Number: DE-JNJFOC-20121006222

PATIENT
  Age: 59 Year

DRUGS (9)
  1. ABCIXIMAB [Suspect]
     Indication: PLATELET COUNT INCREASED
     Route: 042
  2. ASPIRIN [Suspect]
     Indication: ACUTE MYOCARDIAL INFARCTION
     Route: 065
  3. HEPARIN [Suspect]
     Indication: PLATELET COUNT INCREASED
     Route: 065
  4. HEPARIN [Suspect]
     Indication: ACUTE MYOCARDIAL INFARCTION
     Route: 065
  5. CLOPIDOGREL [Suspect]
     Indication: ACUTE MYOCARDIAL INFARCTION
     Route: 048
  6. PRASUGREL [Suspect]
     Indication: PLATELET COUNT INCREASED
     Route: 048
  7. HYDROXYUREA [Suspect]
     Indication: PLATELET COUNT INCREASED
     Route: 065
  8. TICAGRELOR [Suspect]
     Indication: PLATELET COUNT INCREASED
     Route: 048
  9. TICAGRELOR [Suspect]
     Indication: PLATELET COUNT INCREASED
     Route: 048

REACTIONS (3)
  - Drug ineffective [Unknown]
  - Aortic thrombosis [Recovered/Resolved]
  - Drug resistance [Unknown]
